FAERS Safety Report 4728077-4 (Version None)
Quarter: 2005Q3

REPORT INFORMATION
  Report Type: 
  Country: None (occurrence: None)
  Receive Date: 20050729
  Receipt Date: 20050721
  Transmission Date: 20060218
  Serious: Yes (Other)
  Sender: FDA-Public Use
  Company Number: PHEH2005US08107

PATIENT
  Age: 65 Year
  Sex: Female

DRUGS (1)
  1. ZOMETA [Suspect]
     Indication: BREAST CANCER METASTATIC
     Dates: start: 20030101

REACTIONS (6)
  - ASEPTIC NECROSIS BONE [None]
  - IMPAIRED HEALING [None]
  - ORAL PAIN [None]
  - ORAL SOFT TISSUE DISORDER [None]
  - SEQUESTRECTOMY [None]
  - TOOTH EXTRACTION [None]
